FAERS Safety Report 7676397-6 (Version None)
Quarter: 2011Q3

REPORT INFORMATION
  Report Type: 
  Country: None (occurrence: None)
  Receive Date: 20110811
  Receipt Date: 20110808
  Transmission Date: 20111222
  Serious: Yes (Other)
  Sender: FDA-Public Use
  Company Number: US-PFIZER INC-2011181308

PATIENT
  Sex: Female

DRUGS (3)
  1. GEODON [Suspect]
     Dosage: 80 MG, 2X/DAY
     Dates: start: 20090501, end: 20100201
  2. GEODON [Suspect]
     Dosage: UNK
     Dates: start: 20090101
  3. GEODON [Suspect]
     Dosage: 60 MG, 1X/DAY
     Dates: start: 20100401, end: 20110101

REACTIONS (1)
  - TARDIVE DYSKINESIA [None]
